FAERS Safety Report 15329697 (Version 1)
Quarter: 2018Q3

REPORT INFORMATION
  Report Type: Report from Study
  Country: PE (occurrence: PE)
  Receive Date: 20180829
  Receipt Date: 20180829
  Transmission Date: 20181010
  Serious: Yes (Other)
  Sender: FDA-Public Use
  Company Number: PE-BAYER-2018-161347

PATIENT
  Age: 43 Year
  Sex: Female

DRUGS (1)
  1. BETAFERON [Suspect]
     Active Substance: INTERFERON BETA-1B
     Indication: MULTIPLE SCLEROSIS
     Dosage: 0.25 ML, QOD
     Route: 058
     Dates: start: 20180609

REACTIONS (6)
  - Depressed level of consciousness [Recovered/Resolved]
  - Asthenia [Recovered/Resolved]
  - Injection site discolouration [Not Recovered/Not Resolved]
  - Injection site oedema [Recovering/Resolving]
  - Injection site erythema [Recovering/Resolving]
  - Injection site pain [Recovering/Resolving]

NARRATIVE: CASE EVENT DATE: 20180609
